FAERS Safety Report 13649003 (Version 3)
Quarter: 2017Q3

REPORT INFORMATION
  Report Type: Report from Study
  Country: CA (occurrence: CA)
  Receive Date: 20170613
  Receipt Date: 20170724
  Transmission Date: 20171127
  Serious: Yes (Death, Hospitalization)
  Sender: FDA-Public Use
  Company Number: CA-HLSUS-2017-CA-000560

PATIENT
  Age: 37 Year
  Sex: Male

DRUGS (4)
  1. CLOZARIL [Suspect]
     Active Substance: CLOZAPINE
     Dosage: 500 MG
     Route: 048
     Dates: start: 20020604, end: 20170616
  2. KEMADRIN [Concomitant]
     Active Substance: PROCYCLIDINE HYDROCHLORIDE
     Dosage: 5MG ONCE A DAY
  3. CELEXA [Concomitant]
     Active Substance: CITALOPRAM HYDROBROMIDE
     Dosage: 40MG
  4. RIVOTRIL [Concomitant]
     Active Substance: CLONAZEPAM
     Dosage: 0.5 MG THREE TIMES A DAY

REACTIONS (4)
  - Cardiac disorder [Unknown]
  - Completed suicide [Fatal]
  - Hallucination [Unknown]
  - Laceration [Fatal]
